FAERS Safety Report 4959661-0 (Version None)
Quarter: 2006Q1

REPORT INFORMATION
  Report Type: 
  Country: None (occurrence: None)
  Receive Date: 20060331
  Receipt Date: 20060322
  Transmission Date: 20060701
  Serious: Yes (Hospitalization, Other)
  Sender: FDA-Public Use
  Company Number: US-AVENTIS-200612943US

PATIENT
  Sex: Male
  Weight: 72.72 kg

DRUGS (8)
  1. LANTUS [Suspect]
     Indication: DIABETES MELLITUS NON-INSULIN-DEPENDENT
     Dosage: DOSE UNIT: UNITS
     Dates: start: 20050101
  2. LANTUS [Suspect]
     Dosage: DOSE UNIT: UNITS
  3. OPTICLIK (INSULIN INJECTION PEN) [Suspect]
  4. NOVOLOG [Concomitant]
     Dosage: DOSE: UNK
  5. METFORMIN [Concomitant]
  6. GLYBURIDE [Concomitant]
  7. TOPROL-XL [Concomitant]
  8. UNKNOWN DRUG [Concomitant]

REACTIONS (9)
  - BLOOD GLUCOSE INCREASED [None]
  - CARDIAC ARREST [None]
  - CORONARY ARTERY DISEASE [None]
  - CORONARY ARTERY OCCLUSION [None]
  - FLUID RETENTION [None]
  - HYPOGLYCAEMIA [None]
  - PERICARDIAL EFFUSION [None]
  - PERIPHERAL VASCULAR DISORDER [None]
  - WEIGHT INCREASED [None]
